FAERS Safety Report 4325335-2 (Version None)
Quarter: 2004Q1

REPORT INFORMATION
  Report Type: 
  Country: None (occurrence: None)
  Receive Date: 20040323
  Receipt Date: 20040311
  Transmission Date: 20041129
  Serious: Yes (Disabling)
  Sender: FDA-Public Use
  Company Number: 2004-DE-01205GD

PATIENT
  Age: 60 Year
  Sex: Male

DRUGS (2)
  1. LITHIUM CARBONATE [Suspect]
     Indication: BIPOLAR I DISORDER
  2. ALPHA INTERFERON (INTERFERON ALFA) [Suspect]
     Indication: CHRONIC MYELOID LEUKAEMIA

REACTIONS (11)
  - BIPOLAR I DISORDER [None]
  - CEREBROVASCULAR DISORDER [None]
  - ERYTHEMA [None]
  - FOOT AMPUTATION [None]
  - GANGRENE [None]
  - IMPAIRED HEALING [None]
  - LACUNAR INFARCTION [None]
  - PAIN IN EXTREMITY [None]
  - PULMONARY HYPERTENSION [None]
  - SKIN ULCER [None]
  - VASCULITIS [None]
